FAERS Safety Report 10913086 (Version 1)
Quarter: 2015Q1

REPORT INFORMATION
  Report Type: Report from Study
  Country: GR (occurrence: GR)
  Receive Date: 20150313
  Receipt Date: 20150313
  Transmission Date: 20150721
  Serious: Yes (Hospitalization)
  Sender: FDA-Public Use
  Company Number: GR-SA-2015SA028525

PATIENT
  Age: 73 Year
  Sex: Female

DRUGS (5)
  1. LANTUS [Suspect]
     Active Substance: INSULIN GLARGINE
     Route: 065
     Dates: start: 2011
  2. TRIATEC PLUS [Concomitant]
  3. RENAZOL [Concomitant]
  4. LANTUS [Suspect]
     Active Substance: INSULIN GLARGINE
     Route: 065
  5. SEROQUEL [Concomitant]
     Active Substance: QUETIAPINE FUMARATE

REACTIONS (2)
  - Limb injury [Not Recovered/Not Resolved]
  - Incorrect product storage [Unknown]
